FAERS Safety Report 9013756 (Version 2)
Quarter: 2013Q1

REPORT INFORMATION
  Report Type: Spontaneous
  Country: BR (occurrence: None)
  Receive Date: 20121231
  Receipt Date: 20130124
  Transmission Date: 20140127
  Serious: Yes (Other)
  Sender: FDA-Public Use
  Company Number: VAL_01219_2012

PATIENT
  Sex: Female

DRUGS (3)
  1. PARLODEL [Suspect]
     Indication: BONE DISORDER
     Route: 048
     Dates: start: 20121207
  2. PARLODEL [Suspect]
     Indication: OFF LABEL USE
     Route: 048
     Dates: start: 20121207
  3. PARACETAMOL [Suspect]
     Indication: ABDOMINAL PAIN
     Route: 048
     Dates: start: 20121218

REACTIONS (6)
  - Off label use [None]
  - Expired drug administered [None]
  - Abdominal pain [None]
  - Dyspnoea [None]
  - Throat tightness [None]
  - Blood pressure fluctuation [None]
